FAERS Safety Report 13503148 (Version 2)
Quarter: 2017Q4

REPORT INFORMATION
  Report Type: Report from Study
  Country: CO (occurrence: CO)
  Receive Date: 20170502
  Receipt Date: 20171221
  Transmission Date: 20180320
  Serious: Yes (Other)
  Sender: FDA-Public Use
  Company Number: CO-AMGEN-COLSL2017064245

PATIENT
  Age: 33 Year
  Sex: Male

DRUGS (1)
  1. MIMPARA [Suspect]
     Active Substance: CINACALCET HYDROCHLORIDE
     Indication: HYPERPARATHYROIDISM SECONDARY
     Dosage: UNK, QD
     Route: 048
     Dates: start: 20160826, end: 20161231

REACTIONS (1)
  - Parathyroid tumour [Unknown]

NARRATIVE: CASE EVENT DATE: 20160826
